FAERS Safety Report 22522313 (Version 1)
Quarter: 2023Q2

REPORT INFORMATION
  Report Type: Spontaneous
  Country: KR (occurrence: KR)
  Receive Date: 20230605
  Receipt Date: 20230605
  Transmission Date: 20230721
  Serious: Yes (Other)
  Sender: FDA-Public Use
  Company Number: KR-ORGANON-O2305KOR003146

PATIENT
  Age: 64 Year
  Sex: Male
  Weight: 71.7 kg

DRUGS (8)
  1. COZAAR [Suspect]
     Active Substance: LOSARTAN POTASSIUM
     Indication: Essential hypertension
     Dosage: 1 FORMULATION, 1 PER DAY; FORMULATION: FILM-COATED TABLETS
     Route: 048
     Dates: start: 20180904, end: 20181213
  2. DECITABINE [Suspect]
     Active Substance: DECITABINE
     Indication: Myelodysplastic syndrome
     Dosage: 36.6 MILLIGRAM, 1 PER DAY; FORMULATION: LYOPHILIZED POWDER INJECTION FOR SOLUTION; ROUTE: VEIN
     Dates: start: 20180807, end: 20180811
  3. DECITABINE [Suspect]
     Active Substance: DECITABINE
     Dosage: 36.6 MILLIGRAM, 1 PER DAY; FORMULATION: LYOPHILIZED POWDER INJECTION FOR SOLUTION; ROUTE: VEIN
     Dates: start: 20180904, end: 20180908
  4. LEVOFLOXACIN HEMIHYDRATE [Concomitant]
     Active Substance: LEVOFLOXACIN
     Indication: Prophylaxis
     Dosage: 2 FORMULATION, 1 PER DAY
     Route: 048
     Dates: start: 20180730, end: 20181113
  5. ARTEMISIA ARGYI LEAF [Concomitant]
     Active Substance: ARTEMISIA ARGYI LEAF
     Indication: Prophylaxis
     Dosage: 1 FORMULATION, 0.5 DAY; ARTEMISIAE ARGYI FOLIUM ISOPROPANOL SOFT EXTRACT (20?1)
     Route: 048
     Dates: start: 20180807, end: 20181110
  6. MEGESTROL ACETATE [Concomitant]
     Active Substance: MEGESTROL ACETATE
     Indication: Decreased appetite
     Dosage: 5 MILLILITER, 1 PER DAY
     Route: 048
     Dates: start: 20180807, end: 20181111
  7. GLIMEPIRIDE [Concomitant]
     Active Substance: GLIMEPIRIDE
     Indication: Diabetes mellitus
     Dosage: 1 FORMULATION, 1 PER DAY; FORMULATION: UNCOATED TABLET
     Route: 048
     Dates: start: 20180904, end: 20181021
  8. FLUCONAZOLE [Concomitant]
     Active Substance: FLUCONAZOLE
     Indication: Prophylaxis
     Dosage: 2 FORMULATION, 0.5 DAYS
     Route: 048
     Dates: start: 20180730, end: 20180806

REACTIONS (4)
  - Hypokalaemia [Recovered/Resolved]
  - Nausea [Recovered/Resolved]
  - Serum ferritin increased [Recovered/Resolved]
  - Rhinitis [Recovered/Resolved]

NARRATIVE: CASE EVENT DATE: 20181004
